FAERS Safety Report 8305329-2 (Version None)
Quarter: 2012Q2

REPORT INFORMATION
  Report Type: 
  Country: None (occurrence: None)
  Receive Date: 20120423
  Receipt Date: 20120416
  Transmission Date: 20120825
  Serious: Yes (Other)
  Sender: FDA-Public Use
  Company Number: US-PFIZER INC-2012057052

PATIENT
  Sex: Male
  Weight: 81 kg

DRUGS (5)
  1. THYROID [Concomitant]
     Dosage: UNK
  2. ADVAIR DISKUS 100/50 [Concomitant]
     Dosage: UNK
  3. SIMVASTATIN [Concomitant]
     Dosage: UNK
  4. PREVACID [Concomitant]
     Indication: GASTROOESOPHAGEAL REFLUX DISEASE
     Dosage: UNK
  5. XALKORI [Suspect]
     Indication: NON-SMALL CELL LUNG CANCER
     Dosage: 250 MG, 2X/DAY (BID)
     Route: 048
     Dates: start: 20120201, end: 20120216

REACTIONS (1)
  - LIVER FUNCTION TEST ABNORMAL [None]
